FAERS Safety Report 12362099 (Version 1)
Quarter: 2016Q2

REPORT INFORMATION
  Report Type: Spontaneous
  Country: US (occurrence: US)
  Receive Date: 20160512
  Receipt Date: 20160512
  Transmission Date: 20160815
  Serious: No
  Sender: FDA-Public Use
  Company Number: US-ACTAVIS-2016-05275

PATIENT
  Sex: Female

DRUGS (2)
  1. METFORMIN (UNKNOWN) [Suspect]
     Active Substance: METFORMIN HYDROCHLORIDE
     Indication: TYPE 2 DIABETES MELLITUS
     Dosage: UNK, QAM/QPM
     Route: 065
     Dates: start: 1977, end: 2014
  2. GLIMEPIRIDE (WATSON LABORATORIES) [Suspect]
     Active Substance: GLIMEPIRIDE
     Indication: TYPE 2 DIABETES MELLITUS
     Dosage: UNK, BID
     Route: 065
     Dates: start: 1977

REACTIONS (5)
  - Dizziness [Unknown]
  - Vision blurred [Unknown]
  - Dysgeusia [Unknown]
  - Blood glucose increased [Unknown]
  - Fall [Unknown]
